FAERS Safety Report 8535773-X (Version None)
Quarter: 2012Q3

REPORT INFORMATION
  Report Type: 
  Country: None (occurrence: None)
  Receive Date: 20120725
  Receipt Date: 20120717
  Transmission Date: 20120928
  Serious: Yes (Disabling, Other)
  Sender: FDA-Public Use
  Company Number: US-009507513-1207USA007172

PATIENT

DRUGS (3)
  1. FOSAMAX [Suspect]
     Dosage: UNK MG, UNK
     Route: 048
     Dates: start: 20000101, end: 20110101
  2. FOSAMAX PLUS D [Suspect]
     Dosage: UNK MG, UNK
     Route: 048
     Dates: start: 20000101, end: 20110101
  3. FOSAMAX [Suspect]
     Dosage: UNK MG, UNK
     Route: 048
     Dates: start: 20000101, end: 20110101

REACTIONS (1)
  - FEMUR FRACTURE [None]
